FAERS Safety Report 14214574 (Version 1)
Quarter: 2017Q4

REPORT INFORMATION
  Report Type: Spontaneous
  Country: US (occurrence: US)
  Receive Date: 20171122
  Receipt Date: 20171122
  Transmission Date: 20180321
  Serious: No
  Sender: FDA-Public Use
  Company Number: US-PFIZER INC-2017501668

PATIENT
  Sex: Female
  Weight: 52.16 kg

DRUGS (2)
  1. VOTRIENT [Concomitant]
     Active Substance: PAZOPANIB HYDROCHLORIDE
     Indication: NEOPLASM MALIGNANT
     Dosage: UNK
     Dates: start: 201404
  2. ATROPINE SULFATE/DIPHENOXYLATE HYDROCHLORIDE [Suspect]
     Active Substance: ATROPINE SULFATE\DIPHENOXYLATE HYDROCHLORIDE
     Indication: ADVERSE EVENT
     Dosage: [ATROPINE SULFATE: 0.25MG]/[DIPHENOXYLATE HCL: 2.5MG]. ONE TABLET UPTO FOUR TIMES A DAY AS NEEDED.
     Route: 048

REACTIONS (3)
  - Nausea [Unknown]
  - Product use issue [Unknown]
  - Abdominal pain upper [Recovered/Resolved]
